FAERS Safety Report 7410231-4 (Version None)
Quarter: 2011Q2

REPORT INFORMATION
  Report Type: 
  Country: None (occurrence: None)
  Receive Date: 20110412
  Receipt Date: 20110330
  Transmission Date: 20111010
  Serious: Yes (Hospitalization)
  Sender: FDA-Public Use
  Company Number: KR-WATSON-2011-04858

PATIENT
  Age: 60 Year
  Sex: Female

DRUGS (3)
  1. MIRTAZAPINE [Suspect]
     Indication: SUICIDE ATTEMPT
     Dosage: ESTIMATED 405 MG, SINGLE
     Route: 048
  2. BUSPIRONE HYDROCHLORIDE [Suspect]
     Indication: SUICIDE ATTEMPT
     Dosage: 405 MG, SINGLE
     Route: 048
  3. ALPRAZOLAM [Suspect]
     Indication: SUICIDE ATTEMPT
     Dosage: 20.25 MG, SINGLE
     Route: 048

REACTIONS (3)
  - ATELECTASIS [None]
  - SEDATION [None]
  - ELECTROCARDIOGRAM QT PROLONGED [None]
